FAERS Safety Report 7996463 (Version 2)
Quarter: 2013Q3

REPORT INFORMATION
  Report Type: Spontaneous
  Country: US (occurrence: US)
  Receive Date: 20110617
  Receipt Date: 20130808
  Transmission Date: 20140515
  Serious: Yes (Hospitalization)
  Sender: FDA-Public Use
  Company Number: US-UCBSA-035347

PATIENT
  Sex: Female
  Weight: 61.2 kg

DRUGS (6)
  1. CIMZIA [Suspect]
     Indication: RHEUMATOID ARTHRITIS
     Dates: end: 2011
  2. CIMZIA [Suspect]
     Indication: RHEUMATOID ARTHRITIS
     Dates: start: 2012, end: 201304
  3. PREDNISONE [Suspect]
  4. LISINOPRIL [Concomitant]
     Indication: HYPERTENSION
  5. TYLENOL [Concomitant]
     Indication: PAIN
  6. METHOTREXATE [Concomitant]
     Indication: RHEUMATOID ARTHRITIS
     Dosage: 8 TABLETS ONCE A WEEK FOR 5 YEARS

REACTIONS (2)
  - Hip arthroplasty [Recovered/Resolved]
  - Fungal skin infection [Recovered/Resolved]
